FAERS Safety Report 23053453 (Version 4)
Quarter: 2023Q4

REPORT INFORMATION
  Report Type: Spontaneous
  Country: JP (occurrence: JP)
  Receive Date: 20231011
  Receipt Date: 20231208
  Transmission Date: 20240110
  Serious: Yes (Hospitalization, Other)
  Sender: FDA-Public Use
  Company Number: JP-BRISTOL-MYERS SQUIBB COMPANY-2023-142274

PATIENT
  Age: 61 Year
  Sex: Female
  Weight: 45.4 kg

DRUGS (18)
  1. YERVOY [Suspect]
     Active Substance: IPILIMUMAB
     Indication: Colon cancer
     Route: 041
     Dates: start: 20230407, end: 20230407
  2. YERVOY [Suspect]
     Active Substance: IPILIMUMAB
     Route: 041
     Dates: start: 20230428, end: 20230428
  3. YERVOY [Suspect]
     Active Substance: IPILIMUMAB
     Route: 041
     Dates: start: 20230519, end: 20230519
  4. YERVOY [Suspect]
     Active Substance: IPILIMUMAB
     Route: 041
     Dates: start: 20230609, end: 20230609
  5. OPDIVO [Suspect]
     Active Substance: NIVOLUMAB
     Indication: Colon cancer
     Dosage: AFTER 4 DOSES ONCE/2 WEEKS
     Route: 041
     Dates: start: 20230407, end: 20230407
  6. OPDIVO [Suspect]
     Active Substance: NIVOLUMAB
     Dosage: AFTER 4 DOSES ONCE/2 WEEKS
     Route: 041
     Dates: start: 20230428, end: 20230428
  7. OPDIVO [Suspect]
     Active Substance: NIVOLUMAB
     Dosage: AFTER 4 DOSES ONCE/2 WEEKS
     Route: 041
     Dates: start: 20230519, end: 20230519
  8. OPDIVO [Suspect]
     Active Substance: NIVOLUMAB
     Dosage: AFTER 4 DOSES ONCE/2 WEEKS
     Route: 041
     Dates: start: 20230609, end: 20230609
  9. OPDIVO [Suspect]
     Active Substance: NIVOLUMAB
     Dosage: AFTER 4 DOSES ONCE/2 WEEKS
     Route: 041
     Dates: start: 20230630, end: 20230630
  10. OPDIVO [Suspect]
     Active Substance: NIVOLUMAB
     Dosage: AFTER 4 DOSES ONCE/2 WEEKS
     Route: 041
     Dates: start: 20230714, end: 20230714
  11. OPDIVO [Suspect]
     Active Substance: NIVOLUMAB
     Dosage: AFTER 4 DOSES ONCE/2 WEEKS
     Route: 041
     Dates: start: 20230728, end: 20230728
  12. OPDIVO [Suspect]
     Active Substance: NIVOLUMAB
     Dosage: AFTER 4 DOSES ONCE/2 WEEKS
     Route: 041
     Dates: start: 20230901, end: 20230901
  13. MOVICOL [Concomitant]
     Active Substance: POLYETHYLENE GLYCOL 3350\POTASSIUM CHLORIDE\SODIUM BICARBONATE\SODIUM CHLORIDE
     Indication: Product used for unknown indication
  14. HERBALS [Concomitant]
     Active Substance: HERBALS
     Indication: Product used for unknown indication
  15. LOXOPROFEN [Concomitant]
     Active Substance: LOXOPROFEN
     Indication: Product used for unknown indication
  16. ESOMEPRAZOLE [Concomitant]
     Active Substance: ESOMEPRAZOLE
     Indication: Product used for unknown indication
  17. TRAMADOL [Concomitant]
     Active Substance: TRAMADOL\TRAMADOL HYDROCHLORIDE
     Indication: Product used for unknown indication
  18. PYRIDOXAL PHOSPHATE [Concomitant]
     Active Substance: PYRIDOXAL PHOSPHATE
     Indication: Product used for unknown indication

REACTIONS (3)
  - Thyrotoxic crisis [Recovering/Resolving]
  - Decreased appetite [Recovered/Resolved]
  - Anti-cyclic citrullinated peptide antibody positive [Unknown]

NARRATIVE: CASE EVENT DATE: 20230901
